FAERS Safety Report 6165124-X (Version None)
Quarter: 2009Q2

REPORT INFORMATION
  Report Type: 
  Country: None (occurrence: None)
  Receive Date: 20090421
  Receipt Date: 20090421
  Transmission Date: 20091009
  Serious: Yes (Hospitalization)
  Sender: FDA-Public Use
  Company Number: None

PATIENT
  Age: 80 Year
  Sex: Female

DRUGS (3)
  1. WARFARIN SODIUM [Suspect]
     Indication: MESENTERIC VEIN THROMBOSIS
     Dosage: DOSE ADJUSTED PER MD DAILY PO
     Route: 048
  2. CLOPIDOGREL [Suspect]
     Indication: TRANSIENT ISCHAEMIC ATTACK
     Dosage: 75MG DAILY PO
     Route: 048
  3. NEXIUM [Concomitant]

REACTIONS (7)
  - COAGULOPATHY [None]
  - CONVULSION [None]
  - DIARRHOEA [None]
  - HAEMOGLOBIN DECREASED [None]
  - INTERNATIONAL NORMALISED RATIO INCREASED [None]
  - NAUSEA [None]
  - VOMITING [None]
